FAERS Safety Report 20323741 (Version 1)
Quarter: 2022Q1

REPORT INFORMATION
  Report Type: Spontaneous
  Country: US (occurrence: US)
  Receive Date: 20220111
  Receipt Date: 20220111
  Transmission Date: 20220423
  Serious: Yes (Hospitalization, Other)
  Sender: FDA-Public Use
  Company Number: US-TARO-2022TAR00012

PATIENT
  Age: 34 Year
  Sex: Male

DRUGS (1)
  1. HYDROCORTISONE [Suspect]
     Active Substance: HYDROCORTISONE
     Indication: Dermatitis atopic
     Dosage: OINTMENT/CREAM 1 % (UP TO 2.5 %) MULTIPLE TIMES DAILY
     Route: 061

REACTIONS (1)
  - Steroid withdrawal syndrome [Unknown]
